FAERS Safety Report 24954786 (Version 1)
Quarter: 2025Q1

REPORT INFORMATION
  Report Type: Spontaneous
  Country: US (occurrence: None)
  Receive Date: 20250209
  Receipt Date: 20250209
  Transmission Date: 20250408
  Serious: Yes (Life-Threatening)
  Sender: FDA-CTU
  Company Number: None

PATIENT
  Age: 62 Year
  Sex: Female
  Weight: 85 kg

DRUGS (2)
  1. FENTANYL [Suspect]
     Active Substance: FENTANYL
  2. MIDAZOLAM [Suspect]
     Active Substance: MIDAZOLAM

REACTIONS (4)
  - Extra dose administered [None]
  - Unresponsive to stimuli [None]
  - Respiratory rate decreased [None]
  - Hypopnoea [None]

NARRATIVE: CASE EVENT DATE: 20250117
